FAERS Safety Report 23543263 (Version 1)
Quarter: 2024Q1

REPORT INFORMATION
  Report Type: Spontaneous
  Country: TH (occurrence: TH)
  Receive Date: 20240220
  Receipt Date: 20240220
  Transmission Date: 20240410
  Serious: Yes (Other)
  Sender: FDA-Public Use
  Company Number: TH-ASTELLAS-2024US005082

PATIENT

DRUGS (3)
  1. PADCEV [Suspect]
     Active Substance: ENFORTUMAB VEDOTIN-EJFV
     Indication: Transitional cell carcinoma
     Dosage: 1.25 MG, CYCLIC (ON DAY1, DAY8 AND EVERY 21 DAYS)
     Route: 065
  2. PADCEV [Suspect]
     Active Substance: ENFORTUMAB VEDOTIN-EJFV
     Dosage: 1.25 MG, CYCLIC (ON DAY1, DAY8 AND EVERY 21 DAYS)
     Route: 065
  3. PEMBROLIZUMAB [Suspect]
     Active Substance: PEMBROLIZUMAB
     Indication: Product used for unknown indication
     Dosage: 200 MG, CYCLIC (ON DAY1 AND EVERY 21 DAYS)
     Route: 065

REACTIONS (4)
  - Immunosuppression [Unknown]
  - Alopecia [Unknown]
  - Off label use [Unknown]
  - Product use issue [Unknown]
